FAERS Safety Report 11163479 (Version 2)
Quarter: 2015Q3

REPORT INFORMATION
  Report Type: Spontaneous
  Country: AR (occurrence: AR)
  Receive Date: 20150604
  Receipt Date: 20150818
  Transmission Date: 20151125
  Serious: Yes (Other)
  Sender: FDA-Public Use
  Company Number: AR-AMGEN-ARGSP2015042963

PATIENT
  Age: 81 Year
  Sex: Female

DRUGS (1)
  1. ENBREL [Suspect]
     Active Substance: ETANERCEPT
     Indication: PSORIATIC ARTHROPATHY
     Dosage: 50 MG, WEEKLY
     Route: 065
     Dates: start: 20081205

REACTIONS (15)
  - Allergy to arthropod bite [Recovered/Resolved]
  - Depressed mood [Recovered/Resolved]
  - Fall [Recovered/Resolved]
  - Head injury [Recovering/Resolving]
  - Platelet count decreased [Not Recovered/Not Resolved]
  - Red blood cell count abnormal [Unknown]
  - Drug ineffective [Recovered/Resolved]
  - White blood cell count abnormal [Unknown]
  - Fear [Recovered/Resolved]
  - Platelet count abnormal [Unknown]
  - Nasopharyngitis [Recovered/Resolved]
  - Hypersensitivity [Recovered/Resolved]
  - Anaemia [Not Recovered/Not Resolved]
  - Gait disturbance [Recovering/Resolving]
  - Mental disorder [Recovered/Resolved]

NARRATIVE: CASE EVENT DATE: 2015
